FAERS Safety Report 10192395 (Version 2)
Quarter: 2014Q2

REPORT INFORMATION
  Report Type: Spontaneous
  Country: US (occurrence: US)
  Receive Date: 20140523
  Receipt Date: 20140523
  Transmission Date: 20141212
  Serious: No
  Sender: FDA-Public Use
  Company Number: US-PFIZER INC-2014135008

PATIENT
  Age: 69 Year
  Sex: Female

DRUGS (10)
  1. CELEBREX [Suspect]
     Dosage: 200 MG, AS NEEDED (1 CAPSULE TWICE A DAY AS NEEDED)
  2. METOPROLOL TARTRATE [Concomitant]
     Dosage: 100 MG, 2X/DAY (50 MG TABLET, 2 TABLETS TWICE A DAY)
  3. FUROSEMIDE [Concomitant]
     Dosage: 80 MG, 2X/DAY (40 MG TABLET, 2 TABLETS TWICE A DAY)
  4. MECLIZINE HYDROCHLORIDE [Concomitant]
     Dosage: 25 MG, (1 TABLET AS NEEDED EVERY 6 HOURS)
     Dates: start: 20130906
  5. TRIAMCINOLONE ACETONIDE [Concomitant]
     Dosage: 0.1 %, 2X/DAY (1 APPLICATION TO AFFECTED AREA EXTERNALLY)
     Route: 061
     Dates: start: 20130226
  6. ACETAMINOPHEN [Concomitant]
     Dosage: 500 MG, 2X/DAY
     Route: 048
  7. KLOR-CON [Concomitant]
     Dosage: 10 MEQ, 1X/DAY
     Route: 048
  8. WARFARIN SODIUM [Concomitant]
     Dosage: 2.5 MG, (1-2 DAILY) AS DIRECTED.
     Route: 048
  9. FLURAZEPAM HYDROCHLORIDE [Concomitant]
     Dosage: 30 MG, 1X/DAY (1 CAPSULE AT BEDTIME)
     Dates: start: 20100813
  10. LEVOTHYROXINE SODIUM [Concomitant]
     Dosage: 75 UG, DAILY (TAKE 1 TABLET EVERYDAY ON AN EMPTY STOMACH)
     Dates: start: 20131223

REACTIONS (1)
  - Activities of daily living impaired [Unknown]
